FAERS Safety Report 10173407 (Version 5)
Quarter: 2014Q2

REPORT INFORMATION
  Report Type: Spontaneous
  Country: JP (occurrence: None)
  Receive Date: 20140513
  Receipt Date: 20140603
  Transmission Date: 20141212
  Serious: Yes (Death, Other)
  Sender: FDA-Public Use
  Company Number: ADR-2014-00800

PATIENT
  Age: 13 Year
  Sex: Female
  Weight: 20 kg

DRUGS (1)
  1. GABALON INTRATHECAL [Suspect]
     Dosage: SEE B5
     Dates: start: 20130409, end: 20140502

REACTIONS (9)
  - Cardio-respiratory arrest [None]
  - Epilepsy [None]
  - Fall [None]
  - Tension [None]
  - Somatoform disorder [None]
  - Stress [None]
  - Malaise [None]
  - Somatoform disorder [None]
  - Choking [None]
